FAERS Safety Report 6670748-7 (Version None)
Quarter: 2010Q2

REPORT INFORMATION
  Report Type: 
  Country: None (occurrence: None)
  Receive Date: 20100407
  Receipt Date: 20100326
  Transmission Date: 20101027
  Serious: Yes (Hospitalization)
  Sender: FDA-Public Use
  Company Number: PHHY2010FR18805

PATIENT
  Sex: Male

DRUGS (1)
  1. EUCREAS [Suspect]
     Indication: DIABETES MELLITUS
     Dosage: 1000/50, 2 DF DAILY

REACTIONS (3)
  - ABDOMINAL PAIN [None]
  - HEPATITIS [None]
  - JAUNDICE [None]
